FAERS Safety Report 6045250-6 (Version None)
Quarter: 2009Q1

REPORT INFORMATION
  Report Type: 
  Country: None (occurrence: None)
  Receive Date: 20090121
  Receipt Date: 20090108
  Transmission Date: 20090719
  Serious: Yes (Hospitalization, Other)
  Sender: FDA-Public Use
  Company Number: PHHY2009CN00955

PATIENT
  Age: 82 Year
  Sex: Female

DRUGS (3)
  1. MIACALCIN [Suspect]
     Indication: OSTEOPOROSIS
     Dosage: 50IU FOR THE FIRST 10 DAYS, AND 50 IU EVERY OTHER DAY AFTER THAT
     Route: 030
     Dates: start: 20081225, end: 20090108
  2. OSTEOFORM [Concomitant]
     Dosage: 2 DF, QD
  3. ALPHA D3 [Concomitant]
     Dosage: 0.25 MG, QD

REACTIONS (5)
  - CHILLS [None]
  - DRY MOUTH [None]
  - ILL-DEFINED DISORDER [None]
  - POLYURIA [None]
  - TREMOR [None]
